FAERS Safety Report 10862205 (Version 1)
Quarter: 2015Q1

REPORT INFORMATION
  Report Type: Spontaneous
  Country: US (occurrence: US)
  Receive Date: 20150224
  Receipt Date: 20150224
  Transmission Date: 20150721
  Serious: Yes (Hospitalization)
  Sender: FDA-Public Use
  Company Number: US-ELI_LILLY_AND_COMPANY-US201502005043

PATIENT
  Sex: Female

DRUGS (7)
  1. HUMALOG [Suspect]
     Active Substance: INSULIN LISPRO
  2. TRAMADOL [Concomitant]
     Active Substance: TRAMADOL
  3. ATORVASTATIN [Concomitant]
     Active Substance: ATORVASTATIN
  4. HUMALOG [Suspect]
     Active Substance: INSULIN LISPRO
     Indication: TYPE 2 DIABETES MELLITUS
     Dosage: 36 U, TID
     Route: 065
  5. AMLODIPINE [Concomitant]
     Active Substance: AMLODIPINE BESYLATE
  6. METFORMIN [Concomitant]
     Active Substance: METFORMIN HYDROCHLORIDE
  7. CARVEDILOL. [Concomitant]
     Active Substance: CARVEDILOL

REACTIONS (9)
  - Blood glucose decreased [Unknown]
  - Uterine prolapse [Unknown]
  - Blood glucose increased [Unknown]
  - Diverticulitis [Unknown]
  - Urinary tract infection [Unknown]
  - Headache [Unknown]
  - Drug ineffective [Unknown]
  - Visual acuity reduced [Unknown]
  - Nephrolithiasis [Unknown]
